FAERS Safety Report 19283792 (Version 3)
Quarter: 2022Q1

REPORT INFORMATION
  Report Type: Spontaneous
  Country: GB (occurrence: GB)
  Receive Date: 20210521
  Receipt Date: 20220302
  Transmission Date: 20220424
  Serious: Yes (Other)
  Sender: FDA-Public Use
  Company Number: GB-ALNYLAM PHARMACEUTICALS, INC.-ALN-2021-001206

PATIENT

DRUGS (3)
  1. ONPATTRO [Suspect]
     Active Substance: PATISIRAN SODIUM
     Indication: Amyloidosis
     Dosage: 13 MILLIGRAM, Q3W
     Route: 042
  2. ONPATTRO [Suspect]
     Active Substance: PATISIRAN SODIUM
     Dosage: 13 MILLIGRAM, Q3W
     Route: 042
  3. ONPATTRO [Suspect]
     Active Substance: PATISIRAN SODIUM
     Dosage: 12 MILLIGRAM, Q3W
     Route: 042
     Dates: start: 20200908

REACTIONS (3)
  - Neoplasm malignant [Unknown]
  - Skin lesion [Not Recovered/Not Resolved]
  - Skin lesion removal [Not Recovered/Not Resolved]

NARRATIVE: CASE EVENT DATE: 20210101
